FAERS Safety Report 17845638 (Version 1)
Quarter: 2020Q2

REPORT INFORMATION
  Report Type: Spontaneous
  Country: US (occurrence: US)
  Receive Date: 20200529
  Receipt Date: 20200529
  Transmission Date: 20200714
  Serious: Yes (Life-Threatening, Hospitalization, Disabling)
  Sender: FDA-Public Use
  Company Number: None

PATIENT
  Age: 38 Year
  Sex: Female
  Weight: 56.25 kg

DRUGS (7)
  1. ALBUTEROL. [Concomitant]
     Active Substance: ALBUTEROL
  2. PROPANOLOL [Concomitant]
     Active Substance: PROPRANOLOL HYDROCHLORIDE
  3. EFFEXOR [Suspect]
     Active Substance: VENLAFAXINE HYDROCHLORIDE
     Indication: ANXIETY
     Dosage: ?          QUANTITY:3 TABLET(S);?
     Route: 048
  4. NASAL SPRAY [Concomitant]
     Active Substance: UNSPECIFIED INGREDIENT
  5. EFFEXOR [Suspect]
     Active Substance: VENLAFAXINE HYDROCHLORIDE
     Indication: DEPRESSION
     Dosage: ?          QUANTITY:3 TABLET(S);?
     Route: 048
  6. NAPROXEN. [Concomitant]
     Active Substance: NAPROXEN
  7. CLARION [Concomitant]

REACTIONS (16)
  - Blood pressure increased [None]
  - Migraine [None]
  - Musculoskeletal disorder [None]
  - Paraesthesia [None]
  - Delusion [None]
  - Muscle spasms [None]
  - Withdrawal syndrome [None]
  - Logorrhoea [None]
  - Tachyphrenia [None]
  - Body temperature abnormal [None]
  - Fatigue [None]
  - Serotonin syndrome [None]
  - Nausea [None]
  - Vomiting [None]
  - Sleep disorder [None]
  - Brain injury [None]

NARRATIVE: CASE EVENT DATE: 20200307
